FAERS Safety Report 10677722 (Version 4)
Quarter: 2015Q1

REPORT INFORMATION
  Report Type: Spontaneous
  Country: US (occurrence: US)
  Receive Date: 20141229
  Receipt Date: 20150313
  Transmission Date: 20150720
  Serious: Yes (Other)
  Sender: FDA-Public Use
  Company Number: US-LUNDBECK-DKLU1106928

PATIENT
  Sex: Male

DRUGS (4)
  1. NORTHERA [Suspect]
     Active Substance: DROXIDOPA
     Route: 048
     Dates: start: 20141213
  2. NORTHERA [Suspect]
     Active Substance: DROXIDOPA
     Indication: PARKINSON^S DISEASE
     Route: 048
     Dates: start: 20141212
  3. NORTHERA [Suspect]
     Active Substance: DROXIDOPA
     Indication: ORTHOSTATIC HYPOTENSION
     Route: 048
  4. NORTHERA [Suspect]
     Active Substance: DROXIDOPA
     Route: 048
     Dates: start: 201501

REACTIONS (9)
  - Blood pressure decreased [Unknown]
  - Hypotension [Unknown]
  - Dizziness [Recovering/Resolving]
  - Confusional state [Unknown]
  - Memory impairment [Recovering/Resolving]
  - Blood pressure increased [Recovering/Resolving]
  - Fatigue [Unknown]
  - Loss of consciousness [Unknown]
  - Incorrect dose administered [Unknown]
